FAERS Safety Report 5057648-3 (Version None)
Quarter: 2006Q3

REPORT INFORMATION
  Report Type: 
  Country: None (occurrence: None)
  Receive Date: 20060721
  Receipt Date: 20060105
  Transmission Date: 20061208
  Serious: No
  Sender: FDA-Public Use
  Company Number: 4868768

PATIENT
  Age: 67 Year
  Sex: Female

DRUGS (5)
  1. AVANDIA [Suspect]
     Dosage: 4MG TWICE PER DAY
     Route: 048
  2. GLUCOPHAGE [Concomitant]
     Route: 065
  3. BENICAR [Concomitant]
     Route: 065
  4. GLUCOTIDE [Concomitant]
     Route: 065
  5. MEVACOR [Concomitant]
     Route: 065

REACTIONS (1)
  - WEIGHT INCREASED [None]
